FAERS Safety Report 14559667 (Version 1)
Quarter: 2018Q1

REPORT INFORMATION
  Report Type: Spontaneous
  Country: US (occurrence: US)
  Receive Date: 20180221
  Receipt Date: 20180221
  Transmission Date: 20180509
  Serious: Yes (Other)
  Sender: FDA-Public Use
  Company Number: PHEH2018US006006

PATIENT
  Age: 37 Year
  Sex: Female

DRUGS (2)
  1. CAPECITABINE. [Suspect]
     Active Substance: CAPECITABINE
     Indication: ADENOCARCINOMA
     Dosage: UNK
     Route: 065
     Dates: start: 201706
  2. LAPATINIB [Suspect]
     Active Substance: LAPATINIB
     Indication: ADENOCARCINOMA
     Dosage: UNK
     Route: 065
     Dates: start: 201706

REACTIONS (4)
  - Malignant neoplasm progression [Unknown]
  - Carcinoembryonic antigen increased [Unknown]
  - Product use in unapproved indication [Unknown]
  - Adenocarcinoma [Unknown]
